FAERS Safety Report 6134804-4 (Version None)
Quarter: 2009Q1

REPORT INFORMATION
  Report Type: 
  Country: None (occurrence: None)
  Receive Date: 20090327
  Receipt Date: 20090317
  Transmission Date: 20090719
  Serious: Yes (Other)
  Sender: FDA-Public Use
  Company Number: JP-PFIZER INC-2009186536

PATIENT

DRUGS (3)
  1. ATENOLOL [Suspect]
     Route: 048
  2. AMLODIN [Suspect]
     Route: 048
  3. BLOPRESS [Suspect]
     Route: 048

REACTIONS (2)
  - ELECTROCARDIOGRAM QT PROLONGED [None]
  - VENTRICULAR ARRHYTHMIA [None]
